FAERS Safety Report 5253582-4 (Version None)
Quarter: 2007Q1

REPORT INFORMATION
  Report Type: 
  Country: None (occurrence: None)
  Receive Date: 20070301
  Receipt Date: 20070223
  Transmission Date: 20070707
  Serious: Yes (Other)
  Sender: FDA-Public Use
  Company Number: US-PFIZER INC-2005004876

PATIENT
  Sex: Male
  Weight: 183 kg

DRUGS (3)
  1. ATORVASTATIN [Suspect]
     Indication: MIXED HYPERLIPIDAEMIA
     Route: 048
     Dates: start: 20040922, end: 20041114
  2. ATORVASTATIN [Suspect]
     Route: 048
  3. DELSYM [Concomitant]
     Route: 048

REACTIONS (2)
  - BACK INJURY [None]
  - NEPHROLITHIASIS [None]
